FAERS Safety Report 25448033 (Version 1)
Quarter: 2025Q2

REPORT INFORMATION
  Report Type: Spontaneous
  Country: US (occurrence: US)
  Receive Date: 20250617
  Receipt Date: 20250617
  Transmission Date: 20250716
  Serious: Yes (Life-Threatening, Other)
  Sender: BOEHRINGER INGELHEIM
  Company Number: US-Komodo Health-a23aa000008H36XAAS

PATIENT
  Age: 76 Year
  Sex: Female

DRUGS (1)
  1. PRADAXA [Suspect]
     Active Substance: DABIGATRAN ETEXILATE MESYLATE
     Indication: Atrial fibrillation

REACTIONS (2)
  - Breast cancer [Not Recovered/Not Resolved]
  - Nausea [Recovered/Resolved]

NARRATIVE: CASE EVENT DATE: 20180101
